FAERS Safety Report 9885662 (Version 1)
Quarter: 2014Q1

REPORT INFORMATION
  Report Type: Spontaneous
  Country: US (occurrence: US)
  Receive Date: 20140210
  Receipt Date: 20140210
  Transmission Date: 20141002
  Serious: No
  Sender: FDA-Public Use
  Company Number: US-PFIZER INC-2014035055

PATIENT
  Age: 49 Year
  Sex: Female
  Weight: 70.3 kg

DRUGS (7)
  1. ZYVOX [Suspect]
     Indication: STAPHYLOCOCCAL INFECTION
     Dosage: UNK, 2X/DAY
     Route: 048
     Dates: start: 20140121
  2. TAMOXIFEN [Concomitant]
     Dosage: UNK
  3. CALCIUM [Concomitant]
     Dosage: UNK
  4. AFRIN NASAL SPRAY [Concomitant]
     Dosage: UNK
     Route: 045
  5. TYLENOL PM [Concomitant]
     Dosage: UNK
  6. OXYCODONE [Concomitant]
     Dosage: UNK
  7. TYLENOL [Concomitant]
     Dosage: UNK

REACTIONS (2)
  - Incorrect product storage [Unknown]
  - Alanine aminotransferase increased [Unknown]
